FAERS Safety Report 10697780 (Version 1)
Quarter: 2015Q1

REPORT INFORMATION
  Report Type: Spontaneous
  Country: US (occurrence: None)
  Receive Date: 20150107
  Receipt Date: 20150107
  Transmission Date: 20150721
  Serious: No
  Sender: FDA-Public Use
  Company Number: None

PATIENT
  Age: 56 Year
  Sex: Female
  Weight: 68.04 kg

DRUGS (1)
  1. VANIQA [Suspect]
     Active Substance: EFLORNITHINE HYDROCHLORIDE
     Indication: SKIN COSMETIC PROCEDURE
     Dosage: APPLY CREAM, BID, TRANSDERMAL
     Route: 062
     Dates: start: 20150105, end: 20150105

REACTIONS (2)
  - Product odour abnormal [None]
  - Headache [None]

NARRATIVE: CASE EVENT DATE: 20150105
